FAERS Safety Report 19878819 (Version 5)
Quarter: 2023Q1

REPORT INFORMATION
  Report Type: Report from Study
  Country: JP (occurrence: JP)
  Receive Date: 20210924
  Receipt Date: 20230330
  Transmission Date: 20230417
  Serious: Yes (Hospitalization, Other)
  Sender: FDA-Public Use
  Company Number: JP-TAKEDA-2021TJP090838

PATIENT
  Age: 57 Year
  Sex: Male

DRUGS (5)
  1. TEDUGLUTIDE [Suspect]
     Active Substance: TEDUGLUTIDE
     Indication: Short-bowel syndrome
     Dosage: 0.025 MILLIGRAM/KILOGRAM, QD
     Route: 058
     Dates: start: 20210901
  2. TEDUGLUTIDE [Suspect]
     Active Substance: TEDUGLUTIDE
     Indication: Short-bowel syndrome
     Dosage: 0.025 MILLIGRAM/KILOGRAM, QD
     Route: 058
     Dates: start: 20210901
  3. TEDUGLUTIDE [Suspect]
     Active Substance: TEDUGLUTIDE
     Indication: Short-bowel syndrome
     Dosage: 0.025 MILLIGRAM/KILOGRAM, QD
     Route: 058
     Dates: start: 20210901
  4. TEDUGLUTIDE [Suspect]
     Active Substance: TEDUGLUTIDE
     Indication: Short-bowel syndrome
     Dosage: 0.025 MILLIGRAM/KILOGRAM, QD
     Route: 058
     Dates: start: 20210901
  5. STELARA [Concomitant]
     Active Substance: USTEKINUMAB
     Dosage: UNK
     Route: 065

REACTIONS (5)
  - Malaise [Not Recovered/Not Resolved]
  - Abdominal pain [Recovered/Resolved]
  - Nausea [Recovered/Resolved]
  - Duodenal ulcer [Recovered/Resolved]
  - Abdominal distension [Recovered/Resolved]

NARRATIVE: CASE EVENT DATE: 20210907
